FAERS Safety Report 10928121 (Version 6)
Quarter: 2015Q4

REPORT INFORMATION
  Report Type: Spontaneous
  Country: JP (occurrence: JP)
  Receive Date: 20150319
  Receipt Date: 20151013
  Transmission Date: 20160304
  Serious: Yes (Death)
  Sender: FDA-Public Use
  Company Number: JP-BIOGENIDEC-2015BI035514

PATIENT
  Age: 44 Year
  Sex: Female

DRUGS (6)
  1. REBAMIPIDE [Concomitant]
     Active Substance: REBAMIPIDE
     Indication: NAUSEA
  2. LOXONIN [Concomitant]
     Active Substance: LOXOPROFEN SODIUM
     Indication: PAIN
  3. SAIKOKEISHITO (HERBAL MEDICINE) [Concomitant]
     Indication: FATIGUE
  4. NEUROTROPIN [Concomitant]
     Active Substance: NEUROTROPIN
  5. AVONEX [Suspect]
     Active Substance: INTERFERON BETA-1A
     Indication: MULTIPLE SCLEROSIS
     Route: 030
     Dates: start: 20141226, end: 20150307
  6. MAGNESIUM OXIDE. [Concomitant]
     Active Substance: MAGNESIUM OXIDE
     Indication: CONSTIPATION

REACTIONS (3)
  - Nausea [Unknown]
  - Hepatitis fulminant [Fatal]
  - Decreased appetite [Unknown]

NARRATIVE: CASE EVENT DATE: 201502
